FAERS Safety Report 16040797 (Version 2)
Quarter: 2019Q1

REPORT INFORMATION
  Report Type: Spontaneous
  Country: GB (occurrence: GB)
  Receive Date: 20190306
  Receipt Date: 20190308
  Transmission Date: 20190418
  Serious: Yes (Death, Other)
  Sender: FDA-Public Use
  Company Number: GB-009507513-1903GBR000764

PATIENT

DRUGS (1)
  1. PREVYMIS [Suspect]
     Active Substance: LETERMOVIR
     Indication: CYTOMEGALOVIRUS INFECTION
     Dosage: UNK
     Dates: start: 201902

REACTIONS (2)
  - Medication error [Unknown]
  - Death [Fatal]

NARRATIVE: CASE EVENT DATE: 201902
